FAERS Safety Report 9570853 (Version 1)
Quarter: 2013Q4

REPORT INFORMATION
  Report Type: Spontaneous
  Country: FR (occurrence: FR)
  Receive Date: 20131001
  Receipt Date: 20131001
  Transmission Date: 20140711
  Serious: Yes (Hospitalization)
  Sender: FDA-Public Use
  Company Number: FR-ASTRAZENECA-2013SE71886

PATIENT
  Age: 25216 Day
  Sex: Female

DRUGS (10)
  1. MERONEM [Suspect]
     Indication: PLEURAL FISTULA
     Route: 042
     Dates: start: 20130718, end: 20130830
  2. VANCOMYCINE [Suspect]
     Indication: PLEURAL FISTULA
     Route: 042
     Dates: start: 20130718, end: 20130830
  3. TRIFLUCAN [Suspect]
     Indication: PLEURAL FISTULA
     Route: 042
     Dates: start: 20130820, end: 20130902
  4. CANCIDAS [Suspect]
     Indication: PLEURAL FISTULA
     Route: 042
     Dates: start: 20130801, end: 20130820
  5. TENORMINE [Concomitant]
     Route: 048
  6. ANAFRANIL [Concomitant]
     Route: 048
  7. LEVOTHYROX [Concomitant]
     Route: 048
  8. OLMETEC [Concomitant]
     Route: 048
  9. ALDACTAZINE [Concomitant]
     Route: 048
  10. IMOVANE [Concomitant]
     Route: 048

REACTIONS (1)
  - Drug reaction with eosinophilia and systemic symptoms [Recovering/Resolving]
